FAERS Safety Report 8230321-6 (Version None)
Quarter: 2012Q1

REPORT INFORMATION
  Report Type: 
  Country: None (occurrence: None)
  Receive Date: 20120307
  Receipt Date: 20090903
  Transmission Date: 20120608
  Serious: Yes (Other)
  Sender: FDA-Public Use
  Company Number: PHEH2009US10548

PATIENT
  Sex: Male

DRUGS (2)
  1. ZOMETA [Concomitant]
  2. AFINITOR [Suspect]
     Indication: RENAL CELL CARCINOMA
     Dosage: 10 MG, QD

REACTIONS (1)
  - RENAL FAILURE [None]
